FAERS Safety Report 9549865 (Version 1)
Quarter: 2013Q3

REPORT INFORMATION
  Report Type: Spontaneous
  Country: US (occurrence: US)
  Receive Date: 20130924
  Receipt Date: 20130924
  Transmission Date: 20140515
  Serious: Yes (Hospitalization, Other)
  Sender: FDA-Public Use
  Company Number: US-ROCHE-1276894

PATIENT
  Age: 54 Year
  Sex: Female

DRUGS (6)
  1. AVASTIN [Suspect]
     Indication: RETINAL HAEMORRHAGE
     Route: 050
     Dates: start: 20130503
  2. AVASTIN [Suspect]
     Route: 050
     Dates: start: 20130531
  3. AVASTIN [Suspect]
     Route: 050
     Dates: start: 20130625
  4. AVASTIN [Suspect]
     Route: 050
     Dates: start: 20130809
  5. METFORMIN [Concomitant]
     Indication: DIABETES MELLITUS
     Route: 065
  6. GLIPIZIDE [Concomitant]
     Indication: DIABETES MELLITUS

REACTIONS (4)
  - Retinal ischaemia [Unknown]
  - Retinal vein thrombosis [Unknown]
  - Eyelid infection [Recovered/Resolved]
  - Visual acuity reduced [Unknown]
